FAERS Safety Report 18912834 (Version 1)
Quarter: 2021Q1

REPORT INFORMATION
  Report Type: Report from Study
  Country: CN (occurrence: CN)
  Receive Date: 20210218
  Receipt Date: 20210218
  Transmission Date: 20210420
  Serious: Yes (Other)
  Sender: FDA-Public Use
  Company Number: CN-GLAXOSMITHKLINE-CN2021APC033111

PATIENT
  Sex: Male

DRUGS (6)
  1. ORNIDAZOLE [Suspect]
     Active Substance: ORNIDAZOLE
     Indication: LISTERIOSIS
     Dosage: UNK
     Route: 064
  2. SULBACTAM [Suspect]
     Active Substance: SULBACTAM
     Indication: LISTERIOSIS
     Dosage: UNK
     Route: 064
  3. PENICILLIN [Suspect]
     Active Substance: PENICILLIN
     Indication: LISTERIOSIS
     Route: 064
  4. CEFUROXIME. [Suspect]
     Active Substance: CEFUROXIME
     Indication: LISTERIOSIS
     Dosage: UNK
     Route: 064
  5. MEROPENEM. [Suspect]
     Active Substance: MEROPENEM
     Indication: LISTERIOSIS
     Dosage: UNK
     Route: 064
  6. CEFOPERAZONE [Suspect]
     Active Substance: CEFOPERAZONE
     Indication: LISTERIOSIS
     Dosage: UNK
     Route: 064

REACTIONS (5)
  - Foetal heart rate increased [Unknown]
  - Foetal distress syndrome [Unknown]
  - Premature baby [Unknown]
  - Foetal movement disorder [Unknown]
  - Foetal exposure during pregnancy [Unknown]
